FAERS Safety Report 19288878 (Version 3)
Quarter: 2021Q3

REPORT INFORMATION
  Report Type: Report from Study
  Country: US (occurrence: US)
  Receive Date: 20210521
  Receipt Date: 20210715
  Transmission Date: 20211014
  Serious: Yes (Hospitalization)
  Sender: FDA-Public Use
  Company Number: US-GLAXOSMITHKLINE-US2021GSK103329

PATIENT
  Age: 58 Year
  Sex: Male
  Weight: 123.36 kg

DRUGS (20)
  1. NIVOLUMAB [Suspect]
     Active Substance: NIVOLUMAB
     Dosage: 480 MG, Z?EVERY 2 WEEKS
     Route: 042
     Dates: start: 20210308, end: 20210308
  2. FOLFIRI [Suspect]
     Active Substance: FLUOROURACIL\IRINOTECAN\LEUCOVORIN
     Indication: PRODUCT USED FOR UNKNOWN INDICATION
     Dosage: UNK
     Dates: start: 20210412
  3. DIPHENOXYLATE/ATROPINE [Concomitant]
     Active Substance: ATROPINE\DIPHENOXYLATE
     Dosage: 2.5 / 0.025 MG PER TABLET
  4. ESCITALOPRAM OXALATE. [Concomitant]
     Active Substance: ESCITALOPRAM OXALATE
     Dosage: UNK
     Route: 048
  5. GLIPIZIDE TABLET [Concomitant]
     Active Substance: GLIPIZIDE
     Dosage: 5 MG
  6. OXYCODONE IMMEDIATE RELEASE TABLET [Concomitant]
     Active Substance: OXYCODONE HYDROCHLORIDE
     Dosage: 10 MG
  7. SODIUM CHLORIDE. [Concomitant]
     Active Substance: SODIUM CHLORIDE
     Dosage: UNK
     Route: 042
  8. APIXABAN TABLET [Concomitant]
     Dosage: 5 MG
  9. LORAZEPAM TABLET [Concomitant]
     Active Substance: LORAZEPAM
     Dosage: 0.5 MG
  10. PANCRELIPASE (LIP?PROT?AMYL) [Concomitant]
     Dosage: 36000 UNITS CPEP
     Route: 048
  11. FLUOROURACIL INFUSION [Concomitant]
     Dosage: UNK
     Route: 042
  12. ONDANSETRON TABLET [Concomitant]
     Active Substance: ONDANSETRON
     Dosage: 8 MG
  13. NIVOLUMAB [Suspect]
     Active Substance: NIVOLUMAB
     Dosage: 240 MG, Z?EVERY 2 WEEKS
     Route: 042
     Dates: start: 20210208, end: 20210208
  14. EZETIMIBE TABLET [Concomitant]
     Dosage: 10 MG
  15. HEPARIN LOCK FLUSH [Concomitant]
     Active Substance: HEPARIN SODIUM
     Dosage: 100 UNIT/ML INJECTION
  16. SODIUM CHLORIDE INJECTION [Concomitant]
     Active Substance: SODIUM CHLORIDE
     Dosage: 0.9 %
  17. NIRAPARIB [Suspect]
     Active Substance: NIRAPARIB
     Indication: PANCREATIC CARCINOMA
     Dosage: 200 MG, QD
     Route: 048
     Dates: start: 20201116, end: 20210405
  18. LEVOTHYROXINE SODIUM. [Concomitant]
     Active Substance: LEVOTHYROXINE SODIUM
     Dosage: UNK
     Route: 048
  19. NIVOLUMAB [Suspect]
     Active Substance: NIVOLUMAB
     Indication: PANCREATIC CARCINOMA
     Dosage: 240 MG, Z?EVERY 4 WEEKS
     Route: 042
     Dates: start: 20201116, end: 20201116
  20. OXYCONTIN ER TABLET (OXYCODONE) [Concomitant]
     Dosage: 20 MG

REACTIONS (6)
  - Abdominal pain [Unknown]
  - Colitis [Unknown]
  - Nausea [Unknown]
  - Dyspnoea [Unknown]
  - Diarrhoea [Unknown]
  - Vomiting [Unknown]

NARRATIVE: CASE EVENT DATE: 20210511
